FAERS Safety Report 4447694-2 (Version None)
Quarter: 2004Q3

REPORT INFORMATION
  Report Type: 
  Country: None (occurrence: None)
  Receive Date: 20040802
  Receipt Date: 20040413
  Transmission Date: 20050211
  Serious: No
  Sender: FDA-Public Use
  Company Number: 2004-115283-NL

PATIENT
  Age: 39 Year
  Sex: Female

DRUGS (6)
  1. NUVARING [Suspect]
     Indication: CONTRACEPTION
     Dosage: DF DAILY VAGINAL
     Route: 067
     Dates: start: 20020101
  2. NUVARING [Suspect]
     Indication: PREMENSTRUAL SYNDROME
     Dosage: DF DAILY VAGINAL
     Route: 067
     Dates: start: 20020101
  3. THYROID TAB [Concomitant]
  4. MULTI-VITAMINS [Concomitant]
  5. MONISTAT [Concomitant]
  6. LEVOFLOXACIN [Concomitant]

REACTIONS (3)
  - DEVICE FAILURE [None]
  - MEDICAL DEVICE DISCOMFORT [None]
  - URINARY TRACT INFECTION [None]
